FAERS Safety Report 9322203 (Version 1)
Quarter: 2013Q2

REPORT INFORMATION
  Report Type: Spontaneous
  Country: US (occurrence: US)
  Receive Date: 20130531
  Receipt Date: 20130531
  Transmission Date: 20140414
  Serious: Yes (Other)
  Sender: FDA-Public Use
  Company Number: US-INCYTE CORPORATION-2012IN002774

PATIENT
  Age: 66 Year
  Sex: Male

DRUGS (1)
  1. JAKAFI [Suspect]
     Indication: POLYCYTHAEMIA VERA

REACTIONS (1)
  - Pneumonia cryptococcal [Recovered/Resolved]
